FAERS Safety Report 5710170-0 (Version None)
Quarter: 2008Q2

REPORT INFORMATION
  Report Type: 
  Country: None (occurrence: None)
  Receive Date: 20080418
  Receipt Date: 20080106
  Transmission Date: 20081010
  Serious: No
  Sender: FDA-Public Use
  Company Number: US-ASTRAZENECA-2008UW00456

PATIENT
  Age: 92 Year
  Sex: Female

DRUGS (6)
  1. TOPROL-XL [Suspect]
     Indication: HYPERTENSION
     Route: 048
     Dates: end: 20070101
  2. TOPROL-XL [Suspect]
     Route: 048
  3. TOPROL-XL [Suspect]
     Route: 048
  4. COUMADIN [Concomitant]
  5. TIMOPTIC [Concomitant]
  6. LUMIGAN [Concomitant]

REACTIONS (4)
  - BALANCE DISORDER [None]
  - FALL [None]
  - GAIT DISTURBANCE [None]
  - JOINT DISLOCATION [None]
